FAERS Safety Report 17448588 (Version 1)
Quarter: 2020Q1

REPORT INFORMATION
  Report Type: Spontaneous
  Country: US (occurrence: US)
  Receive Date: 20200224
  Receipt Date: 20200224
  Transmission Date: 20200409
  Serious: No
  Sender: FDA-Public Use
  Company Number: US-ACCORD-166124

PATIENT
  Age: 51 Year
  Sex: Female
  Weight: 48.53 kg

DRUGS (1)
  1. BUPROPION/BUPROPION HYDROCHLORIDE [Suspect]
     Active Substance: BUPROPION HYDROCHLORIDE
     Indication: ANXIETY
     Dosage: ONCE A DAY AND 150 MG ONCE A DAY AS NEEDED
     Route: 048
     Dates: start: 201809

REACTIONS (4)
  - Anxiety [Not Recovered/Not Resolved]
  - Product odour abnormal [Unknown]
  - Off label use [Unknown]
  - Drug ineffective [Unknown]
